FAERS Safety Report 8600950-6 (Version None)
Quarter: 2012Q3

REPORT INFORMATION
  Report Type: 
  Country: None (occurrence: None)
  Receive Date: 20120805
  Receipt Date: 20120724
  Transmission Date: 20120928
  Serious: Yes (Death, Hospitalization)
  Sender: FDA-Public Use
  Company Number: KAD201207-000401

PATIENT
  Age: 71 Year
  Sex: Male

DRUGS (4)
  1. FLUCYTOSINE [Suspect]
     Indication: DISSEMINATED CRYPTOCOCCOSIS
  2. AMPHOTERICIN B [Suspect]
     Indication: DISSEMINATED CRYPTOCOCCOSIS
  3. AZATHIOPRINE SODIUM [Suspect]
     Indication: PEMPHIGUS
     Dosage: 100 MG
  4. PREDNISONE TAB [Suspect]
     Indication: PEMPHIGUS
     Dosage: 10 MG

REACTIONS (3)
  - GENERAL PHYSICAL HEALTH DETERIORATION [None]
  - DISSEMINATED CRYPTOCOCCOSIS [None]
  - LOSS OF CONSCIOUSNESS [None]
